FAERS Safety Report 7366411-X (Version None)
Quarter: 2011Q1

REPORT INFORMATION
  Report Type: 
  Country: None (occurrence: None)
  Receive Date: 20110225
  Receipt Date: 20101221
  Transmission Date: 20110831
  Serious: Yes (Other)
  Sender: FDA-Public Use
  Company Number: 320495

PATIENT
  Age: 49 Year
  Sex: Male
  Weight: 99.3 kg

DRUGS (10)
  1. SIMVASTATIN [Concomitant]
  2. VICTOZA [Suspect]
     Indication: TYPE 2 DIABETES MELLITUS
     Dosage: SUBCUTANEOUS, 1.2 MG, QD, SUBCUTANEOUS, 0.6 MG, QD, SUBCUTANEOUS
     Route: 058
     Dates: start: 20101207, end: 20101207
  3. VICTOZA [Suspect]
     Indication: TYPE 2 DIABETES MELLITUS
     Dosage: SUBCUTANEOUS, 1.2 MG, QD, SUBCUTANEOUS, 0.6 MG, QD, SUBCUTANEOUS
     Route: 058
     Dates: start: 20101208, end: 20101214
  4. VICTOZA [Suspect]
     Indication: TYPE 2 DIABETES MELLITUS
     Dosage: SUBCUTANEOUS, 1.2 MG, QD, SUBCUTANEOUS, 0.6 MG, QD, SUBCUTANEOUS
     Route: 058
     Dates: start: 20101001, end: 20101001
  5. METFORMIN HCL [Concomitant]
  6. DIOVAN [Concomitant]
  7. INDAPAMIDE [Concomitant]
  8. KLOR-CON [Concomitant]
  9. JANUVIA [Concomitant]
  10. DILTIAZEM [Concomitant]

REACTIONS (8)
  - PYREXIA [None]
  - NAUSEA [None]
  - ASTHENIA [None]
  - WEIGHT DECREASED [None]
  - DYSPEPSIA [None]
  - VOMITING [None]
  - DIZZINESS [None]
  - BLOOD GLUCOSE INCREASED [None]
